FAERS Safety Report 5988650-2 (Version None)
Quarter: 2008Q4

REPORT INFORMATION
  Report Type: 
  Country: None (occurrence: None)
  Receive Date: 20081204
  Receipt Date: 20081126
  Transmission Date: 20090506
  Serious: Yes (Death)
  Sender: FDA-Public Use
  Company Number: 2008SP022409

PATIENT
  Age: 73 Year
  Sex: Female
  Weight: 60 kg

DRUGS (4)
  1. TEMODAL [Suspect]
     Indication: ANAPLASTIC ASTROCYTOMA
     Dosage: 160 MG;QD
     Dates: start: 20070801, end: 20070821
  2. TEMODAL [Suspect]
     Indication: GLIOBLASTOMA
     Dosage: 160 MG;QD
     Dates: start: 20070801, end: 20070821
  3. DEXAMETHASONE [Concomitant]
  4. METOPROLOL [Concomitant]

REACTIONS (3)
  - DISEASE PROGRESSION [None]
  - LYMPHOPENIA [None]
  - THROMBOCYTOPENIA [None]
